FAERS Safety Report 14032521 (Version 1)
Quarter: 2017Q4

REPORT INFORMATION
  Report Type: Report from Study
  Country: US (occurrence: US)
  Receive Date: 20171002
  Receipt Date: 20171002
  Transmission Date: 20180321
  Serious: Yes (Hospitalization)
  Sender: FDA-Public Use
  Company Number: US-BAYER-2017-172318

PATIENT
  Age: 60 Year
  Sex: Female

DRUGS (1)
  1. NEXAVAR [Suspect]
     Active Substance: SORAFENIB
     Indication: HEPATOCELLULAR CARCINOMA
     Dosage: 400 MG, BID
     Route: 048
     Dates: start: 20170825, end: 20170907

REACTIONS (14)
  - Asthenia [None]
  - Skin fissures [None]
  - General physical condition abnormal [None]
  - Oedema peripheral [None]
  - Confusional state [None]
  - Joint swelling [None]
  - Diarrhoea [None]
  - Dry skin [None]
  - Decreased appetite [None]
  - Abscess [None]
  - Infection [None]
  - Dyspnoea [None]
  - Peripheral swelling [None]
  - Necrotising fasciitis [None]

NARRATIVE: CASE EVENT DATE: 2017
